FAERS Safety Report 14102544 (Version 1)
Quarter: 2017Q4

REPORT INFORMATION
  Report Type: Spontaneous
  Country: DK (occurrence: DK)
  Receive Date: 20171018
  Receipt Date: 20171018
  Transmission Date: 20180321
  Serious: Yes (Other)
  Sender: FDA-Public Use
  Company Number: DK-CELLTRION INC.-2017DK013031

PATIENT

DRUGS (5)
  1. PANTOPRAZOLE [Concomitant]
     Active Substance: PANTOPRAZOLE
  2. REMSIMA [Suspect]
     Active Substance: INFLIXIMAB
     Dosage: 400 MG, EVERY 8 WEEKS
     Route: 042
     Dates: start: 20170808, end: 20170808
  3. REMSIMA [Suspect]
     Active Substance: INFLIXIMAB
     Indication: CROHN^S DISEASE
     Dosage: 400 MG, EVERY 8 WEEKS
     Route: 042
     Dates: start: 20140311, end: 20140311
  4. MERCAPTOPURINE. [Concomitant]
     Active Substance: MERCAPTOPURINE
  5. MAGNESIA                           /00123201/ [Concomitant]
     Active Substance: MAGNESIUM HYDROXIDE

REACTIONS (1)
  - Tooth fracture [Unknown]
